FAERS Safety Report 10639142 (Version 1)
Quarter: 2014Q4

REPORT INFORMATION
  Report Type: Report from Study
  Country: US (occurrence: US)
  Receive Date: 20141208
  Receipt Date: 20141208
  Transmission Date: 20150529
  Serious: Yes (Other)
  Sender: FDA-Public Use
  Company Number: US-BAYER-2014-178595

PATIENT
  Age: 64 Year
  Sex: Female
  Weight: 63.99 kg

DRUGS (1)
  1. ASPIRIN. [Suspect]
     Active Substance: ASPIRIN
     Indication: PRODUCT USED FOR UNKNOWN INDICATION
     Dosage: UNK, UNK

REACTIONS (4)
  - Pharyngeal oedema [None]
  - Drug hypersensitivity [Unknown]
  - Mouth swelling [Unknown]
  - Asphyxia [Unknown]
